FAERS Safety Report 13749051 (Version 1)
Quarter: 2017Q3

REPORT INFORMATION
  Report Type: Spontaneous
  Country: None (occurrence: US)
  Receive Date: 20170713
  Receipt Date: 20170713
  Transmission Date: 20171127
  Serious: Yes (Hospitalization)
  Sender: FDA-Public Use
  Company Number: None

PATIENT
  Age: 4 Year
  Sex: Male
  Weight: 16.3 kg

DRUGS (5)
  1. VINCRISTINE SULFATE. [Suspect]
     Active Substance: VINCRISTINE SULFATE
     Dates: end: 20170706
  2. METHOTREXATE. [Suspect]
     Active Substance: METHOTREXATE
     Dates: end: 20170706
  3. CYTARABINE. [Suspect]
     Active Substance: CYTARABINE
     Dates: end: 20170628
  4. ONCASPAR [Suspect]
     Active Substance: PEGASPARGASE
     Dates: end: 20170702
  5. DEXAMETHASONE. [Suspect]
     Active Substance: DEXAMETHASONE
     Dates: end: 20170711

REACTIONS (2)
  - Sinusitis fungal [None]
  - Febrile neutropenia [None]

NARRATIVE: CASE EVENT DATE: 20170711
